FAERS Safety Report 16759699 (Version 1)
Quarter: 2019Q3

REPORT INFORMATION
  Report Type: Spontaneous
  Country: DE (occurrence: DE)
  Receive Date: 20190830
  Receipt Date: 20190830
  Transmission Date: 20191005
  Serious: Yes (Death, Other)
  Sender: FDA-Public Use
  Company Number: DE-009507513-1908DEU010250

PATIENT
  Age: 63 Year
  Sex: Female
  Weight: 50 kg

DRUGS (16)
  1. PANTOPRAZOLE [Suspect]
     Active Substance: PANTOPRAZOLE
     Indication: GASTROOESOPHAGEAL REFLUX DISEASE
     Dosage: 40 MILLIGRAM
  2. CEFUROXIME SANDOZ (CEFUROXIME SODIUM) [Suspect]
     Active Substance: CEFUROXIME SODIUM
     Indication: PRODUCT USED FOR UNKNOWN INDICATION
     Dosage: 250 MILLIGRAM
     Route: 065
  3. MOXIFLOXACIN. [Suspect]
     Active Substance: MOXIFLOXACIN
     Indication: BRONCHIAL HYPERREACTIVITY
     Dosage: 400 MILLIGRAM
     Route: 048
  4. CEFUROX (CEFUROXIME SODIUM) [Concomitant]
     Indication: NASOPHARYNGITIS
     Dosage: 500 MILLIGRAM
     Route: 065
  5. BUDES [Suspect]
     Active Substance: BUDESONIDE
     Indication: BRONCHITIS
     Dosage: 0.2 MILLIGRAM
     Route: 065
  6. VALSARTAN. [Suspect]
     Active Substance: VALSARTAN
     Indication: PRODUCT USED FOR UNKNOWN INDICATION
     Dosage: 80 MG MORNING
     Route: 065
  7. MONTELUKAST SODIUM. [Suspect]
     Active Substance: MONTELUKAST SODIUM
     Indication: BRONCHIAL HYPERREACTIVITY
     Dosage: 10 MILLIGRAM
     Route: 065
  8. CEFUROXIME. [Suspect]
     Active Substance: CEFUROXIME
     Indication: PRODUCT USED FOR UNKNOWN INDICATION
     Dosage: 500 (UNIT UNKNOWN)
  9. DEXA-GENTAMICIN EYE DROPS [Concomitant]
     Indication: PRODUCT USED FOR UNKNOWN INDICATION
     Dosage: 2.5 GRAM
  10. IBU RATIOPHARM [Concomitant]
     Indication: PRODUCT USED FOR UNKNOWN INDICATION
     Dosage: 400 MILLIGRAM, TID
     Route: 065
  11. CLEXANE (ENOXAPARIN SODIUM) [Suspect]
     Active Substance: ENOXAPARIN SODIUM
     Indication: PRODUCT USED FOR UNKNOWN INDICATION
     Route: 065
  12. RAMIPRIL. [Suspect]
     Active Substance: RAMIPRIL
     Indication: PRODUCT USED FOR UNKNOWN INDICATION
     Dosage: 5 MILLIGRAM
     Route: 065
  13. IBU [Suspect]
     Active Substance: IBUPROFEN
     Indication: PRODUCT USED FOR UNKNOWN INDICATION
     Dosage: 600 MILLIGRAM
  14. XARELTO [Suspect]
     Active Substance: RIVAROXABAN
     Indication: PRODUCT USED FOR UNKNOWN INDICATION
     Dosage: 20 MILLIGRAM, QD
     Route: 065
  15. DILTIAZEM. [Concomitant]
     Active Substance: DILTIAZEM
     Indication: BLOOD PRESSURE INCREASED
     Dosage: 90 MILLIGRAM
  16. ACETAMINOPHEN. [Suspect]
     Active Substance: ACETAMINOPHEN
     Indication: PRODUCT USED FOR UNKNOWN INDICATION
     Dosage: 500
     Route: 065

REACTIONS (77)
  - Dizziness [Unknown]
  - Rash [Unknown]
  - Disorientation [Unknown]
  - Venous thrombosis [Unknown]
  - Thinking abnormal [Unknown]
  - Renal pain [Unknown]
  - Cardiomyopathy [Unknown]
  - Headache [Unknown]
  - Confusional state [Unknown]
  - Bronchitis [Unknown]
  - Fatigue [Unknown]
  - Trismus [Unknown]
  - Chills [Unknown]
  - Drug intolerance [Unknown]
  - Asthenia [Unknown]
  - Tendonitis [Unknown]
  - Vomiting [Unknown]
  - Infected bite [Unknown]
  - Visual impairment [Unknown]
  - Osteoarthritis [Unknown]
  - Dysphagia [Fatal]
  - Microsleep [Unknown]
  - Memory impairment [Unknown]
  - Acute sinusitis [Unknown]
  - Pyrexia [Fatal]
  - Flatulence [Unknown]
  - Disturbance in attention [Unknown]
  - Diplopia [Unknown]
  - Photopsia [Unknown]
  - Weight decreased [Fatal]
  - Cough [Unknown]
  - Performance status decreased [Not Recovered/Not Resolved]
  - Paraesthesia [Unknown]
  - Amaurosis [Unknown]
  - Circulatory collapse [Unknown]
  - Deep vein thrombosis [Unknown]
  - Diarrhoea [Unknown]
  - Hypophagia [Fatal]
  - Eye swelling [Unknown]
  - Myocarditis [Unknown]
  - Pain [Unknown]
  - Neck pain [Not Recovered/Not Resolved]
  - Dyspepsia [Unknown]
  - Depersonalisation/derealisation disorder [Unknown]
  - Peripheral swelling [Unknown]
  - Productive cough [Unknown]
  - Conjunctivitis [Unknown]
  - Discharge [Unknown]
  - Erysipelas [Unknown]
  - Decreased appetite [Unknown]
  - Apathy [Fatal]
  - Myalgia [Fatal]
  - Retroperitoneal haematoma [Unknown]
  - Hypersensitivity [Unknown]
  - Flank pain [Unknown]
  - Nausea [Unknown]
  - Soft tissue swelling [Unknown]
  - Nephropathy [Unknown]
  - Feeling abnormal [Unknown]
  - Vitamin D deficiency [Unknown]
  - Tension headache [Unknown]
  - Bronchial hyperreactivity [Unknown]
  - Laryngeal pain [Unknown]
  - Nasopharyngitis [Unknown]
  - Oedema [Unknown]
  - Thrombocytopenia [Fatal]
  - Muscular weakness [Unknown]
  - Arthralgia [Unknown]
  - Lymphostasis [Unknown]
  - Malaise [Unknown]
  - Renal pain [Unknown]
  - Depression [Fatal]
  - Pancytopenia [Unknown]
  - Chest pain [Unknown]
  - Tinnitus [Unknown]
  - Breast pain [Unknown]
  - Shock haemorrhagic [Unknown]

NARRATIVE: CASE EVENT DATE: 201302
